FAERS Safety Report 5264491-9 (Version None)
Quarter: 2007Q1

REPORT INFORMATION
  Report Type: 
  Country: None (occurrence: None)
  Receive Date: 20070309
  Receipt Date: 20070223
  Transmission Date: 20070707
  Serious: Yes (Death, Hospitalization)
  Sender: FDA-Public Use
  Company Number: 104

PATIENT
  Sex: Male

DRUGS (2)
  1. FAZACLO ODT [Suspect]
     Indication: SCHIZOAFFECTIVE DISORDER
     Dosage: 400 MG PO DAILY
     Route: 048
     Dates: start: 20061017, end: 20070121
  2. LITHIUM CARBONATE [Concomitant]

REACTIONS (5)
  - BRAIN DEATH [None]
  - FALL [None]
  - HEAD INJURY [None]
  - LOSS OF CONSCIOUSNESS [None]
  - TRAUMATIC INTRACRANIAL HAEMORRHAGE [None]
